FAERS Safety Report 21052508 (Version 1)
Quarter: 2022Q3

REPORT INFORMATION
  Report Type: Spontaneous
  Country: HU (occurrence: HU)
  Receive Date: 20220707
  Receipt Date: 20220707
  Transmission Date: 20221026
  Serious: Yes (Life-Threatening, Hospitalization, Other)
  Sender: FDA-Public Use
  Company Number: HU-002147023-NVSC2022HU139583

PATIENT
  Sex: Male

DRUGS (3)
  1. VALSARTAN [Suspect]
     Active Substance: VALSARTAN
     Indication: Cardiac failure
     Dosage: 320 MILLIGRAM, QD, 160 MG, BID (2 X)
     Route: 065
     Dates: start: 201804
  2. SACUBITRIL\VALSARTAN [Suspect]
     Active Substance: SACUBITRIL\VALSARTAN
     Indication: Cardiac failure
     Dosage: 2 DOSAGE FORM, QD, (49/51 MG)2 DOSAGE FORM, QD
     Route: 065
     Dates: start: 201804, end: 201804
  3. SACUBITRIL\VALSARTAN [Suspect]
     Active Substance: SACUBITRIL\VALSARTAN
     Dosage: 2 DOSAGE FORM, 2 DOSAGE FORM (97/103 MG)
     Route: 065
     Dates: start: 201804

REACTIONS (15)
  - COVID-19 [Unknown]
  - Iron deficiency [Unknown]
  - Myocardial infarction [Unknown]
  - Suffocation feeling [Unknown]
  - Cataract [Unknown]
  - Cardiac failure chronic [Unknown]
  - Cardiac failure [Unknown]
  - Glycosylated haemoglobin increased [Not Recovered/Not Resolved]
  - Hypertension [Unknown]
  - Coronary artery disease [Unknown]
  - Fear [Unknown]
  - Blood pressure increased [Unknown]
  - Glomerular filtration rate abnormal [Not Recovered/Not Resolved]
  - Asthenia [Unknown]
  - Fatigue [Unknown]

NARRATIVE: CASE EVENT DATE: 20180401
